FAERS Safety Report 7814386-9 (Version None)
Quarter: 2011Q4

REPORT INFORMATION
  Report Type: 
  Country: None (occurrence: None)
  Receive Date: 20111014
  Receipt Date: 20111003
  Transmission Date: 20120403
  Serious: Yes (Other)
  Sender: FDA-Public Use
  Company Number: PHHY2011IT86398

PATIENT
  Sex: Female

DRUGS (1)
  1. FEMARA [Suspect]
     Indication: BREAST CANCER
     Dosage: 2.5 MG, DAILY
     Route: 048
     Dates: start: 20091125, end: 20110615

REACTIONS (10)
  - RASH MACULO-PAPULAR [None]
  - SKIN HYPERTROPHY [None]
  - PERIVASCULAR DERMATITIS [None]
  - SKIN EXFOLIATION [None]
  - RASH GENERALISED [None]
  - LYMPHOCYTIC INFILTRATION [None]
  - SKIN OEDEMA [None]
  - ERYTHRODERMIC PSORIASIS [None]
  - SYSTEMIC LUPUS ERYTHEMATOSUS [None]
  - ERYTHEMA [None]
